FAERS Safety Report 21227310 (Version 3)
Quarter: 2022Q3

REPORT INFORMATION
  Report Type: Report from Study
  Country: FR (occurrence: FR)
  Receive Date: 20220818
  Receipt Date: 20220830
  Transmission Date: 20221027
  Serious: Yes (Hospitalization, Other)
  Sender: FDA-Public Use
  Company Number: FR-TAKEDA-2022TUS056077

PATIENT
  Age: 54 Year
  Sex: Female

DRUGS (5)
  1. HUMAN IMMUNOGLOBULIN G [Suspect]
     Active Substance: HUMAN IMMUNOGLOBULIN G
     Indication: Primary immunodeficiency syndrome
     Dosage: 2 DOSAGE FORM, Q4WEEKS
     Route: 042
  2. HUMAN IMMUNOGLOBULIN G [Suspect]
     Active Substance: HUMAN IMMUNOGLOBULIN G
     Indication: Primary immunodeficiency syndrome
     Dosage: 2 DOSAGE FORM, Q4WEEKS
     Route: 042
  3. HUMAN IMMUNOGLOBULIN G [Suspect]
     Active Substance: HUMAN IMMUNOGLOBULIN G
     Indication: Lung disorder
     Dosage: UNK, Q4WEEKS
     Route: 042
  4. HUMAN IMMUNOGLOBULIN G [Suspect]
     Active Substance: HUMAN IMMUNOGLOBULIN G
     Indication: Lung disorder
     Dosage: UNK, Q4WEEKS
     Route: 042
  5. CORTISONE [Suspect]
     Active Substance: CORTISONE
     Indication: Hypersensitivity
     Dosage: UNK
     Route: 065

REACTIONS (12)
  - COVID-19 [Unknown]
  - Renal artery occlusion [Unknown]
  - Meningitis aseptic [Unknown]
  - Gastrointestinal disorder [Unknown]
  - Headache [Recovered/Resolved]
  - Hypersensitivity [Unknown]
  - Feeling abnormal [Unknown]
  - Fatigue [Unknown]
  - Poor venous access [Unknown]
  - Incorrect product administration duration [Unknown]
  - Inappropriate schedule of product administration [Unknown]
  - Wrong technique in product usage process [Unknown]
